FAERS Safety Report 7371869-6 (Version None)
Quarter: 2011Q1

REPORT INFORMATION
  Report Type: 
  Country: None (occurrence: None)
  Receive Date: 20110322
  Receipt Date: 20110322
  Transmission Date: 20110831
  Serious: Yes (Other)
  Sender: FDA-Public Use
  Company Number: None

PATIENT
  Sex: Female
  Weight: 62.5964 kg

DRUGS (1)
  1. RITUXAN [Suspect]
     Indication: CHRONIC LYMPHOCYTIC LEUKAEMIA
     Dosage: 850MG Q28DAYS IV
     Route: 042
     Dates: start: 20110315, end: 20110315

REACTIONS (4)
  - FLUSHING [None]
  - INFUSION RELATED REACTION [None]
  - RASH [None]
  - PRURITUS [None]
